FAERS Safety Report 4421415-1 (Version None)
Quarter: 2004Q3

REPORT INFORMATION
  Report Type: 
  Country: None (occurrence: None)
  Receive Date: 20040709
  Receipt Date: 20040609
  Transmission Date: 20050211
  Serious: No
  Sender: FDA-Public Use
  Company Number: 2004S1000124

PATIENT
  Sex: Female
  Weight: 83 kg

DRUGS (11)
  1. CUBICIN [Suspect]
     Indication: JOINT ABSCESS
     Dosage: 4 MG/KG/Q24H; IV
     Route: 042
     Dates: start: 20040512, end: 20040528
  2. CUBICIN [Suspect]
     Indication: STAPHYLOCOCCAL INFECTION
     Dosage: 4 MG/KG/Q24H; IV
     Route: 042
     Dates: start: 20040512, end: 20040528
  3. TOBRAMYCIN [Concomitant]
  4. ATENOLOL [Concomitant]
  5. NORVASC [Concomitant]
  6. LASIX [Concomitant]
  7. PREDNISONE [Concomitant]
  8. POTASSIUIM [Concomitant]
  9. VANCOMYCIN [Concomitant]
  10. ZOLOFT [Concomitant]
  11. METFORMIN HCL [Concomitant]

REACTIONS (3)
  - ALANINE AMINOTRANSFERASE INCREASED [None]
  - ASPARTATE AMINOTRANSFERASE INCREASED [None]
  - BLOOD ALKALINE PHOSPHATASE INCREASED [None]
